FAERS Safety Report 6371320-9 (Version None)
Quarter: 2009Q3

REPORT INFORMATION
  Report Type: 
  Country: None (occurrence: None)
  Receive Date: 20090921
  Receipt Date: 20090921
  Transmission Date: 20100115
  Serious: No
  Sender: FDA-Public Use
  Company Number: None

PATIENT
  Age: 83 Year
  Sex: Female

DRUGS (1)
  1. FORTICAL [Suspect]
     Dates: start: 20090801

REACTIONS (2)
  - MEDICAL DEVICE COMPLICATION [None]
  - RASH PRURITIC [None]
